FAERS Safety Report 10096511 (Version 4)
Quarter: 2015Q4

REPORT INFORMATION
  Report Type: Spontaneous
  Country: US (occurrence: US)
  Receive Date: 20140422
  Receipt Date: 20151015
  Transmission Date: 20160304
  Serious: Yes (Hospitalization)
  Sender: FDA-Public Use
  Company Number: US-BAYER-2014-057675

PATIENT
  Age: 31 Year
  Sex: Female

DRUGS (14)
  1. YAZ [Suspect]
     Active Substance: DROSPIRENONE\ETHINYL ESTRADIOL
     Dosage: UNK
     Route: 048
     Dates: start: 2001, end: 2003
  2. YASMIN [Suspect]
     Active Substance: DROSPIRENONE\ETHINYL ESTRADIOL
     Dosage: UNK
     Route: 048
     Dates: start: 2001, end: 2003
  3. VIOXX [Concomitant]
     Active Substance: ROFECOXIB
  4. MORPHINE [Concomitant]
     Active Substance: MORPHINE
     Dosage: UNK
     Dates: start: 20030305
  5. AVINZA [Concomitant]
     Active Substance: MORPHINE SULFATE
     Dosage: 30 MG, QD
  6. XANAX [Concomitant]
     Active Substance: ALPRAZOLAM
  7. ELAVIL [Concomitant]
     Active Substance: AMITRIPTYLINE HYDROCHLORIDE
  8. LORTAB [Concomitant]
     Active Substance: ACETAMINOPHEN\HYDROCODONE BITARTRATE
     Dosage: 10 MG, PRN
  9. BEXTRA [Concomitant]
     Active Substance: VALDECOXIB
     Dosage: 20 MG, QD
  10. RESTORIL [Concomitant]
     Active Substance: TEMAZEPAM
  11. DROMADOL [Concomitant]
     Dosage: ONE TABLET EVERY 4 HOURS AS NEEDED
  12. NEURONTIN [Concomitant]
     Active Substance: GABAPENTIN
     Dosage: 300 MG THREE TIMES A DAY AND EXTRA DOSE OF 600 MG AT NIGHT
  13. AMITRIPTYLINE [Concomitant]
     Active Substance: AMITRIPTYLINE
  14. TEMAZEPAM. [Concomitant]
     Active Substance: TEMAZEPAM
     Dosage: 15 MG AT NIGHT

REACTIONS (6)
  - Pulmonary embolism [None]
  - Deep vein thrombosis [None]
  - Injury [None]
  - Pain [None]
  - Thrombosis [None]
  - Cerebrovascular accident [None]

NARRATIVE: CASE EVENT DATE: 2003
